APPROVED DRUG PRODUCT: METFORMIN HYDROCHLORIDE
Active Ingredient: METFORMIN HYDROCHLORIDE
Strength: 1GM
Dosage Form/Route: TABLET, EXTENDED RELEASE;ORAL
Application: A209993 | Product #002 | TE Code: AB2
Applicant: QINGDAO BAHEAL PHARMACEUTICAL CO LTD
Approved: Dec 27, 2018 | RLD: No | RS: No | Type: RX